FAERS Safety Report 14317346 (Version 2)
Quarter: 2018Q1

REPORT INFORMATION
  Report Type: Report from Study
  Country: US (occurrence: US)
  Receive Date: 20171222
  Receipt Date: 20180309
  Transmission Date: 20180509
  Serious: Yes (Hospitalization)
  Sender: FDA-Public Use
  Company Number: US-JNJFOC-20171227185

PATIENT
  Age: 62 Year
  Sex: Male

DRUGS (1)
  1. IMBRUVICA [Suspect]
     Active Substance: IBRUTINIB
     Indication: LYMPHOCYTIC LEUKAEMIA
     Route: 048
     Dates: start: 20170204

REACTIONS (5)
  - Diarrhoea [Unknown]
  - Thrombosis [Unknown]
  - Infection [Unknown]
  - Muscle spasms [Unknown]
  - Aphasia [Unknown]

NARRATIVE: CASE EVENT DATE: 20171208
